FAERS Safety Report 21975960 (Version 3)
Quarter: 2023Q2

REPORT INFORMATION
  Report Type: Spontaneous
  Country: FR (occurrence: FR)
  Receive Date: 20230210
  Receipt Date: 20230426
  Transmission Date: 20230721
  Serious: Yes (Disabling)
  Sender: FDA-Public Use
  Company Number: FR-SUN PHARMACEUTICAL INDUSTRIES LTD-2023RR-377769

PATIENT
  Sex: Male

DRUGS (3)
  1. ODOMZO [Suspect]
     Active Substance: SONIDEGIB
     Indication: Basal cell carcinoma
     Dosage: 200 MILLIGRAM
     Route: 048
     Dates: end: 20221205
  2. ODOMZO [Suspect]
     Active Substance: SONIDEGIB
     Dosage: 1/DAY
     Route: 048
     Dates: start: 20220401, end: 20221201
  3. ODOMZO [Suspect]
     Active Substance: SONIDEGIB
     Dosage: ONCE EVERY OTHER DAY
     Route: 065

REACTIONS (3)
  - Swelling face [Recovering/Resolving]
  - Muscle spasms [Recovering/Resolving]
  - Ageusia [Not Recovered/Not Resolved]
